FAERS Safety Report 13215705 (Version 1)
Quarter: 2017Q1

REPORT INFORMATION
  Report Type: Spontaneous
  Country: US (occurrence: US)
  Receive Date: 20170210
  Receipt Date: 20170210
  Transmission Date: 20170428
  Serious: No
  Sender: FDA-Public Use
  Company Number: US-ROCHE-1777677

PATIENT
  Sex: Female

DRUGS (1)
  1. XOLAIR [Suspect]
     Active Substance: OMALIZUMAB
     Indication: ASTHMA
     Route: 065
     Dates: start: 201507, end: 2016

REACTIONS (4)
  - Myalgia [Unknown]
  - Breast discharge [Unknown]
  - Menorrhagia [Unknown]
  - Lymphadenopathy [Unknown]
